FAERS Safety Report 5866012-6 (Version None)
Quarter: 2008Q3

REPORT INFORMATION
  Report Type: 
  Country: None (occurrence: None)
  Receive Date: 20080829
  Receipt Date: 20080821
  Transmission Date: 20090109
  Serious: Yes (Hospitalization, Other)
  Sender: FDA-Public Use
  Company Number: IL-PFIZER INC-2008060801

PATIENT
  Age: 75 Year
  Sex: Female

DRUGS (5)
  1. REVATIO [Suspect]
     Indication: PULMONARY HYPERTENSION
     Route: 048
  2. ELTROXIN [Concomitant]
  3. ALDACTONE [Concomitant]
  4. FUSID [Concomitant]
  5. COUMADIN [Concomitant]

REACTIONS (2)
  - HEPATITIS [None]
  - JAUNDICE CHOLESTATIC [None]
